FAERS Safety Report 6425196-1 (Version None)
Quarter: 2009Q4

REPORT INFORMATION
  Report Type: 
  Country: None (occurrence: None)
  Receive Date: 20091103
  Receipt Date: 20091019
  Transmission Date: 20100525
  Serious: Yes (Other)
  Sender: FDA-Public Use
  Company Number: US-BAYER-200839184NA

PATIENT
  Age: 56 Year
  Sex: Female
  Weight: 55 kg

DRUGS (16)
  1. MAGNEVIST [Suspect]
     Indication: ANGIOGRAM
     Dates: start: 20050416, end: 20050416
  2. OMNISCAN [Suspect]
     Indication: ANGIOGRAM
     Dosage: TOTAL DAILY DOSE: 40 ML
     Route: 042
     Dates: start: 20050111, end: 20050111
  3. CELLCEPT [Concomitant]
  4. PREDNISONE [Concomitant]
  5. COUMADIN [Concomitant]
  6. TYLENOL W/ CODEINE NO. 3 [Concomitant]
  7. MORPHINE SULFATE [Concomitant]
  8. PROGRAF [Concomitant]
  9. PEPCID [Concomitant]
  10. MAGNESIUM LACTATE [Concomitant]
  11. COLACE [Concomitant]
  12. K-PHOS NEUTRAL [Concomitant]
  13. VALCYTE [Concomitant]
  14. CALCIUM GLUCONATE [Concomitant]
  15. EPOGEN [Concomitant]
  16. RENAGEL [Concomitant]

REACTIONS (26)
  - ANXIETY [None]
  - ARTHRALGIA [None]
  - BURNING SENSATION [None]
  - EMOTIONAL DISTRESS [None]
  - ERYTHEMA [None]
  - FIBROSIS [None]
  - GENERAL PHYSICAL HEALTH DETERIORATION [None]
  - JOINT RANGE OF MOTION DECREASED [None]
  - JOINT SWELLING [None]
  - MOBILITY DECREASED [None]
  - NEPHROGENIC SYSTEMIC FIBROSIS [None]
  - OEDEMA [None]
  - OEDEMA PERIPHERAL [None]
  - PAIN [None]
  - PAIN IN EXTREMITY [None]
  - PEAU D'ORANGE [None]
  - QUALITY OF LIFE DECREASED [None]
  - RASH PAPULAR [None]
  - RASH PRURITIC [None]
  - SKIN FIBROSIS [None]
  - SKIN HYPERPIGMENTATION [None]
  - SKIN HYPERTROPHY [None]
  - SKIN INDURATION [None]
  - SKIN LESION [None]
  - SKIN NODULE [None]
  - SKIN WRINKLING [None]
